FAERS Safety Report 4937605-5 (Version None)
Quarter: 2006Q1

REPORT INFORMATION
  Report Type: 
  Country: None (occurrence: None)
  Receive Date: 20060309
  Receipt Date: 20060221
  Transmission Date: 20060701
  Serious: Yes (Hospitalization)
  Sender: FDA-Public Use
  Company Number: NO-MERCK-0602NOR00019

PATIENT
  Age: 41 Year
  Sex: Male
  Weight: 110 kg

DRUGS (12)
  1. VIOXX [Suspect]
     Indication: MYALGIA
     Route: 048
     Dates: start: 20021018, end: 20041001
  2. VIOXX [Suspect]
     Indication: FIBROMYALGIA
     Route: 048
     Dates: start: 20021018, end: 20041001
  3. CELECOXIB [Concomitant]
     Indication: MYALGIA
     Route: 048
     Dates: start: 20020403, end: 20020422
  4. CELECOXIB [Concomitant]
     Route: 048
     Dates: start: 20020423, end: 20021017
  5. CELECOXIB [Concomitant]
     Route: 048
     Dates: start: 20041001, end: 20050101
  6. CELECOXIB [Concomitant]
     Indication: FIBROMYALGIA
     Route: 048
     Dates: start: 20020403, end: 20020422
  7. CELECOXIB [Concomitant]
     Route: 048
     Dates: start: 20020423, end: 20021017
  8. CELECOXIB [Concomitant]
     Route: 048
     Dates: start: 20041001, end: 20050101
  9. PAROXETINE HYDROCHLORIDE [Concomitant]
     Indication: DEPRESSION
     Route: 065
     Dates: start: 19960709
  10. CITALOPRAM HYDROBROMIDE [Concomitant]
     Route: 065
     Dates: start: 20020213
  11. ACETAMINOPHEN AND CODEINE PHOSPHATE [Concomitant]
     Route: 065
     Dates: start: 19920101
  12. PREDNISOLONE [Concomitant]
     Route: 065
     Dates: start: 19940101

REACTIONS (6)
  - ANGINA PECTORIS [None]
  - CEREBRAL ATROPHY [None]
  - DEPRESSION [None]
  - GENERAL PHYSICAL HEALTH DETERIORATION [None]
  - HYPERTENSION [None]
  - SILENT MYOCARDIAL INFARCTION [None]
